FAERS Safety Report 5393427-5 (Version None)
Quarter: 2007Q3

REPORT INFORMATION
  Report Type: 
  Country: None (occurrence: None)
  Receive Date: 20070723
  Receipt Date: 20070717
  Transmission Date: 20080115
  Serious: Yes (Hospitalization)
  Sender: FDA-Public Use
  Company Number: US-BAYER-200714049GDS

PATIENT
  Age: 65 Year
  Sex: Female

DRUGS (7)
  1. LIDOCAINE [Suspect]
     Indication: LOCAL ANAESTHESIA
     Route: 007
  2. LIDOCAINE [Suspect]
     Dosage: TOTAL DAILY DOSE: 10 ML  UNIT DOSE: 2 %
     Route: 045
  3. BENZOCAINE SPRAY (14% BENZOCAINE/2% BUTAMBEN/2% TETRACAINE HCL) [Suspect]
     Indication: LOCAL ANAESTHESIA
     Route: 048
  4. MIDAZOLAM HCL [Concomitant]
     Indication: SEDATION
     Dosage: TOTAL DAILY DOSE: 2 MG
     Route: 065
  5. ASPIRIN [Concomitant]
     Indication: DRUG USE FOR UNKNOWN INDICATION
     Route: 065
  6. ALBUTEROL [Concomitant]
     Indication: DRUG USE FOR UNKNOWN INDICATION
     Route: 065
  7. FLUMAZENIL [Concomitant]
     Indication: DRUG USE FOR UNKNOWN INDICATION
     Route: 065

REACTIONS (13)
  - ACIDOSIS [None]
  - BLOOD DISORDER [None]
  - BLOOD PRESSURE DIASTOLIC DECREASED [None]
  - COMA [None]
  - HAEMOGLOBIN DECREASED [None]
  - HYPOTENSION [None]
  - HYPOVENTILATION [None]
  - LETHARGY [None]
  - METHAEMOGLOBINAEMIA [None]
  - OXYGEN SATURATION DECREASED [None]
  - STUPOR [None]
  - TACHYCARDIA [None]
  - WHEEZING [None]
